FAERS Safety Report 7633492-5 (Version None)
Quarter: 2011Q3

REPORT INFORMATION
  Report Type: 
  Country: None (occurrence: None)
  Receive Date: 20110725
  Receipt Date: 20110509
  Transmission Date: 20111222
  Serious: No
  Sender: FDA-Public Use
  Company Number: US-BRISTOL-MYERS SQUIBB COMPANY-15728199

PATIENT
  Age: 26 Year
  Sex: Male

DRUGS (5)
  1. PHENERGAN HCL [Concomitant]
  2. CLONIDINE [Concomitant]
  3. ZOLOFT [Concomitant]
  4. SPRYCEL [Suspect]
     Dates: start: 20110401
  5. ZOFRAN [Concomitant]

REACTIONS (1)
  - PAIN IN EXTREMITY [None]
